FAERS Safety Report 4997773-6 (Version None)
Quarter: 2006Q2

REPORT INFORMATION
  Report Type: 
  Country: None (occurrence: None)
  Receive Date: 20060510
  Receipt Date: 20060504
  Transmission Date: 20061013
  Serious: Yes (Other)
  Sender: FDA-Public Use
  Company Number: PHEH2006US05861

PATIENT
  Age: 22 Year
  Sex: Male

DRUGS (2)
  1. EXJADE [Suspect]
     Indication: BLOOD IRON INCREASED
     Dosage: 1500 MG, QD
     Dates: start: 20060202
  2. EXJADE [Suspect]
     Dates: start: 20060502

REACTIONS (6)
  - ANOREXIA [None]
  - FATIGUE [None]
  - INAPPROPRIATE AFFECT [None]
  - INCOHERENT [None]
  - PERSONALITY CHANGE [None]
  - RASH [None]
